FAERS Safety Report 4393519-3 (Version None)
Quarter: 2004Q3

REPORT INFORMATION
  Report Type: 
  Country: None (occurrence: None)
  Receive Date: 20040707
  Receipt Date: 20040707
  Transmission Date: 20050211
  Serious: Yes (Other)
  Sender: FDA-Public Use
  Company Number: None

PATIENT
  Age: 50 Year
  Sex: Male
  Weight: 72.5755 kg

DRUGS (1)
  1. NICOTINE POLACRILEX [Suspect]
     Indication: NICOTINE DEPENDENCE
     Dosage: 1 PER HOUR ~
     Dates: start: 20040301, end: 20040601

REACTIONS (1)
  - HYPOGEUSIA [None]
